FAERS Safety Report 7702334-1 (Version None)
Quarter: 2011Q3

REPORT INFORMATION
  Report Type: 
  Country: None (occurrence: None)
  Receive Date: 20110822
  Receipt Date: 20110818
  Transmission Date: 20111222
  Serious: Yes (Death, Other)
  Sender: FDA-Public Use
  Company Number: PHHY2011TW66817

PATIENT
  Age: 35 Year
  Sex: Female
  Weight: 64 kg

DRUGS (6)
  1. APRESOLINE [Suspect]
     Dosage: 5 MG, UNK
  2. APRESOLINE [Suspect]
     Dosage: 10 MG, UNK
     Route: 042
  3. NICARDIPINE HCL [Suspect]
     Dosage: 1 MG, UNK
  4. LABETALOL HCL [Suspect]
     Indication: HYPERTENSIVE CRISIS
     Dosage: 35 MG, UNK
  5. NICARDIPINE HCL [Suspect]
     Dosage: 2 MG, UNK
     Route: 042
  6. DOPAMINE HCL [Concomitant]
     Dosage: UNK UKN, UNK

REACTIONS (8)
  - MATERNAL EXPOSURE DURING PREGNANCY [None]
  - PHAEOCHROMOCYTOMA [None]
  - HYPERTENSIVE CRISIS [None]
  - DRUG INEFFECTIVE [None]
  - CIRCULATORY COLLAPSE [None]
  - TACHYCARDIA [None]
  - LOSS OF CONSCIOUSNESS [None]
  - VENTRICULAR FIBRILLATION [None]
